FAERS Safety Report 9544515 (Version 1)
Quarter: 2013Q3

REPORT INFORMATION
  Report Type: Spontaneous
  Country: US (occurrence: US)
  Receive Date: 20130923
  Receipt Date: 20130923
  Transmission Date: 20140515
  Serious: Yes (Hospitalization)
  Sender: FDA-Public Use
  Company Number: US-B.I. PHARMACEUTICALS,INC./RIDGEFIELD-2013-BI-29279BP

PATIENT
  Age: 55 Year
  Sex: Female

DRUGS (2)
  1. MICARDIS HCT [Suspect]
     Indication: HYPERTENSION
     Dosage: DOSE PER APPLICATION: 80 MG / 12.5 MG DAILY DOSE:80 MG / 12.5 MG
     Route: 048
     Dates: start: 2011
  2. GEMFIBROZIL [Concomitant]
     Indication: BLOOD CHOLESTEROL INCREASED
     Route: 048

REACTIONS (4)
  - Myocardial infarction [Recovered/Resolved]
  - Palpitations [Recovered/Resolved]
  - Pyrexia [Recovered/Resolved]
  - Urinary tract infection [Not Recovered/Not Resolved]
